FAERS Safety Report 5880381-2 (Version None)
Quarter: 2008Q3

REPORT INFORMATION
  Report Type: 
  Country: None (occurrence: None)
  Receive Date: 20080912
  Receipt Date: 20080609
  Transmission Date: 20090109
  Serious: No
  Sender: FDA-Public Use
  Company Number: PR-ABBOTT-08P-131-0457316-00

PATIENT
  Sex: Male
  Weight: 113.5 kg

DRUGS (7)
  1. HUMIRA [Suspect]
     Indication: PSORIASIS
     Route: 058
     Dates: start: 20080201
  2. METFORMIN HCL [Concomitant]
     Indication: DIABETES MELLITUS
     Route: 048
  3. ROSIGLITAZONE MALEATE [Concomitant]
     Indication: DIABETES MELLITUS
     Route: 048
  4. ROSUVASTATIN [Concomitant]
     Indication: DRUG USE FOR UNKNOWN INDICATION
     Route: 048
  5. DOXEPIN HCL [Concomitant]
     Indication: DEPRESSION
     Route: 048
  6. BENZTROPINE MESYLATE [Concomitant]
     Indication: DEPRESSION
     Route: 048
  7. PERPHENAZINE [Concomitant]
     Indication: DEPRESSION
     Route: 048

REACTIONS (1)
  - UNEVALUABLE EVENT [None]
